FAERS Safety Report 17654291 (Version 1)
Quarter: 2020Q2

REPORT INFORMATION
  Report Type: Report from Study
  Country: US (occurrence: US)
  Receive Date: 20200410
  Receipt Date: 20200410
  Transmission Date: 20200713
  Serious: Yes (Other)
  Sender: FDA-Public Use
  Company Number: US-AMGEN-USACT2020057153

PATIENT
  Age: 65 Year
  Sex: Female

DRUGS (20)
  1. IBUPROFEN. [Concomitant]
     Active Substance: IBUPROFEN
     Dosage: 800 MILLIGRAM, TID (3 IN 1 D)
     Route: 048
     Dates: start: 1995
  2. VALIUM [Concomitant]
     Active Substance: DIAZEPAM
     Indication: DEPRESSION
     Dosage: 5 MILLIGRAM, TID (3 IN 1 D)
     Dates: start: 20120919
  3. VITAMIN B12 [Concomitant]
     Active Substance: CYANOCOBALAMIN
     Indication: PROPHYLAXIS
     Dosage: UNK, QD ( 1 IN 1 D)
     Route: 048
     Dates: start: 20121115
  4. LEVOTHYROXIN [Concomitant]
     Active Substance: LEVOTHYROXINE
     Dosage: 175 MICROGRAM, QD (1 IN 1 D)
     Route: 048
     Dates: start: 1997, end: 20130313
  5. PRAVASTATIN SODIUM. [Concomitant]
     Active Substance: PRAVASTATIN SODIUM
     Dosage: 20 MILLIGRAM, QD
     Route: 048
     Dates: start: 20120809, end: 20130125
  6. PRISTIQ EXTENDED-RELEASE [Concomitant]
     Active Substance: DESVENLAFAXINE SUCCINATE
     Dosage: 50 MILLIGRAM
     Route: 048
     Dates: start: 20140807, end: 201412
  7. CALCIUM MEFOLINATE [Concomitant]
     Active Substance: CALCIUM MEFOLINATE
     Dosage: 7.5 MILLIGRAM, QD
     Route: 048
     Dates: start: 20121105, end: 20121115
  8. BAYER ASPIRIN [Concomitant]
     Active Substance: ASPIRIN
     Dosage: 500 MILLIGRAM, BID
     Route: 048
     Dates: start: 20140601, end: 201412
  9. ENALAPRIL/HYDROCHLOROTHIAZIDE TEVA [Concomitant]
     Active Substance: ENALAPRIL MALEATE\HYDROCHLOROTHIAZIDE
     Dosage: 2 DOSAGE FORM, QD
     Route: 048
     Dates: start: 2000
  10. PRISTIQ EXTENDED-RELEASE [Concomitant]
     Active Substance: DESVENLAFAXINE SUCCINATE
     Indication: DEPRESSION
     Dosage: 50 MILLIGRAM, QD
     Route: 048
     Dates: start: 20120919, end: 20121215
  11. PRAVASTATIN SODIUM. [Concomitant]
     Active Substance: PRAVASTATIN SODIUM
     Dosage: 40 MILLIGRAM, QD
     Route: 048
     Dates: start: 2009, end: 20120808
  12. PAXIL [Concomitant]
     Active Substance: PAROXETINE HYDROCHLORIDE
     Indication: DEPRESSION
     Dosage: 5 MILLIGRAM, QD
     Route: 048
     Dates: start: 20121216, end: 20140725
  13. RELAFEN [Concomitant]
     Active Substance: NABUMETONE
     Dosage: 500 MILLIGRAM, BID
     Route: 048
     Dates: start: 20131213, end: 20140101
  14. ETANERCEPT [Suspect]
     Active Substance: ETANERCEPT
     Indication: RHEUMATOID ARTHRITIS
     Dosage: 50 MG, QWK (WEEKLY, LAST DOSE PRIOR TO SAE 26SEP2014)
     Route: 058
     Dates: start: 20120516
  15. LEVOTHYROXIN [Concomitant]
     Active Substance: LEVOTHYROXINE
     Dosage: 150 MICROGRAM, QD (1 IN 1 D)
     Route: 048
     Dates: start: 20130314
  16. ASPIRIN. [Concomitant]
     Active Substance: ASPIRIN
     Dosage: 500 MILLIGRAM, BID
     Route: 048
     Dates: start: 20140601
  17. ZOSTAVAX [Concomitant]
     Active Substance: VARICELLA-ZOSTER VIRUS STRAIN OKA/MERCK LIVE ANTIGEN
     Indication: PROPHYLAXIS
     Dosage: 0.65 MILLILITER, (SINGLE)
     Route: 058
     Dates: start: 20140715
  18. CALCIUM WITH VITAMIN D [CALCIUM PHOSPHATE;CALCIUM SODIUM LACTATE;ERGOC [Concomitant]
     Dosage: UNK
  19. KLONOPIN [Concomitant]
     Active Substance: CLONAZEPAM
     Dosage: 5 MILLIGRAM, AS NECESSARY (1 IN 1 AS REQUIRED)
     Route: 048
     Dates: start: 20121201, end: 20130318
  20. TRAMADOL. [Concomitant]
     Active Substance: TRAMADOL
     Dosage: 50 MILLIGRAM, BID
     Route: 048
     Dates: start: 20140819

REACTIONS (1)
  - Adenocarcinoma metastatic [Recovered/Resolved with Sequelae]

NARRATIVE: CASE EVENT DATE: 20140929
